FAERS Safety Report 25411332 (Version 1)
Quarter: 2025Q2

REPORT INFORMATION
  Report Type: Spontaneous
  Country: US (occurrence: US)
  Receive Date: 20250609
  Receipt Date: 20250609
  Transmission Date: 20250716
  Serious: No
  Sender: AMGEN
  Company Number: US-AMGEN-USASP2025108541

PATIENT
  Sex: Female

DRUGS (7)
  1. REPATHA [Suspect]
     Active Substance: EVOLOCUMAB
     Indication: Blood cholesterol increased
     Dosage: 140 MILLIGRAM, Q2WK
     Route: 065
  2. REPATHA [Suspect]
     Active Substance: EVOLOCUMAB
     Dosage: 140 MILLIGRAM, Q2WK
     Route: 065
  3. PENICILLIN [Concomitant]
     Active Substance: PENICILLIN
     Indication: Osteomyelitis
     Route: 065
  4. PENICILLIN [Concomitant]
     Active Substance: PENICILLIN
     Route: 065
  5. PENICILLIN [Concomitant]
     Active Substance: PENICILLIN
     Route: 065
  6. PENICILLIN [Concomitant]
     Active Substance: PENICILLIN
     Route: 065
  7. EYLEA [Concomitant]
     Active Substance: AFLIBERCEPT
     Indication: Macular degeneration

REACTIONS (3)
  - Device difficult to use [Unknown]
  - Drug dose omission by device [Unknown]
  - Therapy interrupted [Unknown]
